FAERS Safety Report 5003149-8 (Version None)
Quarter: 2006Q2

REPORT INFORMATION
  Report Type: 
  Country: None (occurrence: None)
  Receive Date: 20060516
  Receipt Date: 20060503
  Transmission Date: 20061013
  Serious: Yes (Hospitalization, Other)
  Sender: FDA-Public Use
  Company Number: AU-NOVOPROD-253071

PATIENT
  Age: 65 Year
  Sex: Male
  Weight: 70 kg

DRUGS (8)
  1. NOVOSEVEN [Suspect]
     Indication: CARDIAC TAMPONADE
     Dosage: 7.2 IU
  2. BLOOD CELLS, PACKED HUMAN [Concomitant]
     Dosage: 8 IU PRIOR TO TREATMENT WITH NOVOSEVEN
  3. BLOOD CELLS, PACKED HUMAN [Concomitant]
     Dosage: 5 IU POST TREATMENT OF NOVOSEVEN
  4. FRESH FROZEN PLASMA [Concomitant]
     Dosage: 7 IU PRIOR TO TREATMENT WITH NOVOSEVEN
  5. FRESH FROZEN PLASMA [Concomitant]
     Dosage: 4 IU POST TREATMENT OF NOVOSEVEN
  6. CRYOPRECIPITATES [Concomitant]
     Dosage: 8 IU PRIOR TO TREATMENT WITH NOVOSEVEN
  7. PLATELETS [Concomitant]
     Dosage: 8 IU POST TREATMENT OF NOVOSEVEN
  8. PLATELETS [Concomitant]
     Dosage: 8 UNK, UNK

REACTIONS (2)
  - CARDIAC TAMPONADE [None]
  - THROMBOSIS [None]
